FAERS Safety Report 8669012 (Version 2)
Quarter: 2013Q4

REPORT INFORMATION
  Report Type: Report from Study
  Country: NO (occurrence: NO)
  Receive Date: 20120717
  Receipt Date: 20131022
  Transmission Date: 20140711
  Serious: Yes (Hospitalization, Disabling)
  Sender: FDA-Public Use
  Company Number: NO-PFIZER INC-2012167496

PATIENT
  Age: 66 Year
  Sex: Male

DRUGS (12)
  1. LIPITOR [Suspect]
     Indication: HYPERCHOLESTEROLAEMIA
     Dosage: 80 MG, 1X/DAY
     Route: 048
     Dates: start: 20120516, end: 20120523
  2. BLINDED THERAPY [Suspect]
     Indication: HYPERCHOLESTEROLAEMIA
     Dosage: UNK
     Route: 048
     Dates: start: 20120516, end: 20120523
  3. SIMVASTATIN [Concomitant]
     Dosage: 40 MG, 1X/DAY
     Dates: end: 20120515
  4. AMLODIPINE BESILATE [Concomitant]
     Dosage: 5 MG, 1X/DAY
     Route: 048
     Dates: end: 2012
  5. LANSOPRAZOLE [Concomitant]
     Dosage: 30 MG, AS NEEDED
  6. VENTOLINE [Concomitant]
     Dosage: 0.2 MG, 4X/DAY
     Route: 055
  7. ALBYL-E [Concomitant]
     Dosage: 160 MG, 1X/DAY
     Route: 048
  8. NITROGLYCERIN [Concomitant]
     Dosage: 0.5 MG, AS NEEDED
     Route: 060
  9. SELO-ZOK [Concomitant]
     Dosage: 50 MG, 1X/DAY
     Route: 048
  10. SINGULAIR [Concomitant]
     Dosage: 10 MG, 1X/DAY
     Route: 048
  11. FLUTIDE [Concomitant]
     Dosage: 250 UG, UNK
     Route: 055
  12. SERETIDE [Concomitant]
     Indication: ASTHMA
     Dosage: 25/125 MCG, 2 DF 2X/DAY
     Route: 055

REACTIONS (8)
  - Conjunctival irritation [Recovered/Resolved]
  - Purpura [Recovered/Resolved]
  - Stomatitis [Recovered/Resolved]
  - Erythema [Recovered/Resolved]
  - General physical health deterioration [Recovering/Resolving]
  - Stevens-Johnson syndrome [Recovered/Resolved with Sequelae]
  - Pyrexia [Recovered/Resolved]
  - Rash generalised [Recovered/Resolved]
